FAERS Safety Report 21303378 (Version 1)
Quarter: 2022Q3

REPORT INFORMATION
  Report Type: Spontaneous
  Country: IE (occurrence: IE)
  Receive Date: 20220907
  Receipt Date: 20220907
  Transmission Date: 20221027
  Serious: Yes (Hospitalization, Other)
  Sender: FDA-Public Use
  Company Number: None

PATIENT
  Age: 23 Year
  Sex: Male

DRUGS (7)
  1. LEVOFLOXACIN [Suspect]
     Active Substance: LEVOFLOXACIN
     Indication: Lower respiratory tract infection
     Route: 042
     Dates: start: 20220703, end: 20220706
  2. ALPRAZOLAM [Suspect]
     Active Substance: ALPRAZOLAM
     Indication: Product used for unknown indication
     Dosage: MORNING
  3. ALPRAZOLAM [Suspect]
     Active Substance: ALPRAZOLAM
     Dates: start: 20220704
  4. EPILIM CHRONO 200MG PROLONGED RELEASE TABLETS [Concomitant]
     Indication: Epilepsy
  5. TOPAMAX 25mg Film-coated Tablets [Concomitant]
     Indication: Product used for unknown indication
  6. RISPERIDONE (GENERIC) [Concomitant]
     Indication: Product used for unknown indication
     Dosage: LOW DOSE
  7. SERTRALINE  (GENERIC) [Concomitant]
     Indication: Product used for unknown indication

REACTIONS (5)
  - Aggression [Not Recovered/Not Resolved]
  - Drug interaction [Not Recovered/Not Resolved]
  - Acute psychosis [Not Recovered/Not Resolved]
  - Loss of consciousness [Not Recovered/Not Resolved]
  - Seizure [Not Recovered/Not Resolved]

NARRATIVE: CASE EVENT DATE: 20220703
